FAERS Safety Report 11861105 (Version 1)
Quarter: 2015Q4

REPORT INFORMATION
  Report Type: Spontaneous
  Country: CN (occurrence: CN)
  Receive Date: 20151222
  Receipt Date: 20151222
  Transmission Date: 20160305
  Serious: Yes (Hospitalization)
  Sender: FDA-Public Use
  Company Number: CN-FRESENIUS KABI-FK201506777

PATIENT
  Age: 27 Year
  Sex: Male

DRUGS (3)
  1. CARBOPLATIN (MANUFACTURER UNKNOWN) [Suspect]
     Active Substance: CARBOPLATIN
     Indication: NEOPLASM MALIGNANT
     Route: 065
  2. PIRARUBICIN [Suspect]
     Active Substance: PIRARUBICIN
     Indication: NEOPLASM MALIGNANT
  3. IFOSFAMIDE (MANUFACTURER UNKNOWN) [Suspect]
     Active Substance: IFOSFAMIDE
     Indication: NEOPLASM MALIGNANT
     Route: 065

REACTIONS (2)
  - Osteonecrosis [Recovered/Resolved]
  - Granulocytopenia [Recovered/Resolved]
